FAERS Safety Report 12587085 (Version 1)
Quarter: 2016Q3

REPORT INFORMATION
  Report Type: Spontaneous
  Country: US (occurrence: US)
  Receive Date: 20160725
  Receipt Date: 20160725
  Transmission Date: 20161109
  Serious: Yes (Hospitalization, Other)
  Sender: FDA-Public Use
  Company Number: US-PFIZER INC-3114338

PATIENT
  Age: 62 Year
  Sex: Male
  Weight: 118.8 kg

DRUGS (14)
  1. BENAZEPRIL [Concomitant]
     Active Substance: BENAZEPRIL HYDROCHLORIDE
     Indication: HYPERTENSION
     Dosage: 10 MG, FREQ: 1 DAY; INTERVAL: 1
     Route: 048
     Dates: start: 20040101, end: 20151128
  2. SPIRONOLACTONE. [Concomitant]
     Active Substance: SPIRONOLACTONE
     Indication: CARDIAC FAILURE CONGESTIVE
     Dosage: 25 MG, FREQ: AS NECESSARY
     Route: 048
     Dates: start: 20110101, end: 20151128
  3. PLACEBO [Suspect]
     Active Substance: UNSPECIFIED INGREDIENT
     Indication: CARDIOVASCULAR DISORDER
     Dosage: FREQ: 1 WEEK; INTERVAL: 2
     Route: 058
     Dates: start: 20141212, end: 20150306
  4. CARVEDILOL. [Concomitant]
     Active Substance: CARVEDILOL
     Indication: CARDIAC FAILURE CONGESTIVE
     Dosage: 25 MG, FREQ: 2 DAY; INTERVAL: 1
     Route: 048
     Dates: start: 20110101
  5. DICLOFENAC [Concomitant]
     Active Substance: DICLOFENAC
     Indication: OSTEOARTHRITIS
     Dosage: 1 %, FREQ: AS NECESSARY
     Route: 061
     Dates: start: 20110101
  6. INVESTIGATIONAL DRUG [Suspect]
     Active Substance: INVESTIGATIONAL PRODUCT
     Indication: CARDIOVASCULAR DISORDER
     Dosage: FREQ: 1 WEEK; INTERVAL: 2
     Route: 058
     Dates: start: 20141212, end: 20150306
  7. ERYTHROMYCIN. [Concomitant]
     Active Substance: ERYTHROMYCIN
     Indication: BLEPHARITIS
     Dosage: DOSE: 1 APP; ROUTE OF ADMINISTRATION: OINT, FREQ: AS NECESSARY
     Dates: start: 20110101
  8. SIMVASTATIN. [Concomitant]
     Active Substance: SIMVASTATIN
     Indication: HYPERLIPIDAEMIA
     Dosage: 40 MG, FREQ: 1 DAY; INTERVAL: 1
     Route: 048
     Dates: start: 20080101
  9. WARFARIN [Concomitant]
     Active Substance: WARFARIN
     Dosage: 7.5 MG, X 6 WEEK
     Route: 048
     Dates: start: 19950101
  10. NOVOLIN [Concomitant]
     Active Substance: INSULIN HUMAN
     Dosage: 18 IU, FREQ: 1 DAY; INTERVAL: 1
     Route: 058
     Dates: start: 20110101
  11. WARFARIN [Concomitant]
     Active Substance: WARFARIN
     Indication: ATRIAL FIBRILLATION
     Dosage: 5 MG, X 1 WEEK
     Route: 048
     Dates: start: 19950101
  12. VANCOMYCIN HCL [Suspect]
     Active Substance: VANCOMYCIN HYDROCHLORIDE
     Indication: PRODUCT USED FOR UNKNOWN INDICATION
     Dosage: UNK
     Dates: start: 20151101, end: 20151101
  13. ASPIRIN /00002701/ [Concomitant]
     Active Substance: ASPIRIN
     Indication: ATRIAL FIBRILLATION
     Dosage: 81 MG, FREQ: 1 DAY; INTERVAL: 1
     Route: 048
     Dates: start: 20040101
  14. NOVOLIN [Concomitant]
     Active Substance: INSULIN HUMAN
     Indication: DIABETES MELLITUS
     Dosage: 16 IU, FREQ: 1 DAY; INTERVAL: 1
     Route: 058
     Dates: start: 20110101

REACTIONS (2)
  - Osteomyelitis [Recovering/Resolving]
  - Acute kidney injury [Not Recovered/Not Resolved]

NARRATIVE: CASE EVENT DATE: 20151029
